FAERS Safety Report 6579572-7 (Version None)
Quarter: 2010Q1

REPORT INFORMATION
  Report Type: 
  Country: None (occurrence: None)
  Receive Date: 20100209
  Receipt Date: 20100209
  Transmission Date: 20100710
  Serious: Yes (Death, Hospitalization, Other)
  Sender: FDA-Public Use
  Company Number: None

PATIENT
  Age: 60 Year
  Sex: Female
  Weight: 65 kg

DRUGS (1)
  1. CHANTIX [Suspect]
     Indication: SMOKING CESSATION THERAPY
     Dosage: PO
     Route: 048

REACTIONS (8)
  - ABNORMAL BEHAVIOUR [None]
  - CATATONIA [None]
  - COMPLETED SUICIDE [None]
  - DELUSION [None]
  - PARTNER STRESS [None]
  - PERSONALITY DISORDER [None]
  - PSYCHOTIC DISORDER [None]
  - SPEECH DISORDER [None]
